FAERS Safety Report 25923805 (Version 1)
Quarter: 2025Q4

REPORT INFORMATION
  Report Type: Spontaneous
  Country: US (occurrence: US)
  Receive Date: 20251015
  Receipt Date: 20251015
  Transmission Date: 20260117
  Serious: Yes (Other)
  Sender: LEO PHARM
  Company Number: US-LEO Pharma-383483

PATIENT
  Age: 47 Year
  Sex: Female

DRUGS (1)
  1. ADBRY [Suspect]
     Active Substance: TRALOKINUMAB-LDRM
     Indication: Dermatitis
     Dosage: TREATMENT IS ONGOING
     Route: 058
     Dates: start: 202503

REACTIONS (6)
  - Gastrooesophageal reflux disease [Unknown]
  - Diarrhoea [Unknown]
  - Impaired gastric emptying [Unknown]
  - Eczema [Unknown]
  - Vomiting [Unknown]
  - Irritable bowel syndrome [Unknown]
